FAERS Safety Report 19981549 (Version 1)
Quarter: 2021Q4

REPORT INFORMATION
  Report Type: Spontaneous
  Country: CA (occurrence: CA)
  Receive Date: 20211022
  Receipt Date: 20211022
  Transmission Date: 20220303
  Serious: Yes (Death, Other)
  Sender: FDA-Public Use
  Company Number: CA-COVIS PHARMA GMBH-2021COV24390

PATIENT
  Age: 76 Year
  Sex: Female

DRUGS (2)
  1. RILUTEK [Suspect]
     Active Substance: RILUZOLE
     Indication: Amyotrophic lateral sclerosis
     Route: 048
     Dates: start: 201404
  2. RILUTEK [Suspect]
     Active Substance: RILUZOLE
     Indication: Amyotrophic lateral sclerosis
     Route: 048
     Dates: start: 201411

REACTIONS (2)
  - Death [Fatal]
  - Gastrooesophageal reflux disease [Recovered/Resolved]
